FAERS Safety Report 6787736-2 (Version None)
Quarter: 2010Q2

REPORT INFORMATION
  Report Type: 
  Country: None (occurrence: None)
  Receive Date: 20100623
  Receipt Date: 20070713
  Transmission Date: 20101027
  Serious: No
  Sender: FDA-Public Use
  Company Number: US-PFIZER INC-2007057593

PATIENT
  Sex: Female
  Weight: 168.74 kg

DRUGS (2)
  1. DEPO-PROVERA SUSPENSION/INJ [Suspect]
     Indication: CONTRACEPTION
  2. MEDROXYPROGESTERONE ACETATE [Suspect]
     Indication: CONTRACEPTION

REACTIONS (3)
  - ENDOMETRIAL HYPERTROPHY [None]
  - METRORRHAGIA [None]
  - MUSCLE SPASMS [None]
